FAERS Safety Report 9353709 (Version 1)
Quarter: 2013Q2

REPORT INFORMATION
  Report Type: Spontaneous
  Country: US (occurrence: None)
  Receive Date: 20130617
  Receipt Date: 20130617
  Transmission Date: 20140414
  Serious: Yes (Other)
  Sender: FDA-Public Use
  Company Number: None

PATIENT
  Age: 60 Year
  Sex: Male
  Weight: 104.33 kg

DRUGS (1)
  1. VIOXX [Suspect]
     Indication: PAIN
     Dosage: 1 TABLET, DAILY, PO
     Route: 048
     Dates: start: 20031113, end: 20031213

REACTIONS (1)
  - Cardiac failure [None]
